FAERS Safety Report 6065581-3 (Version None)
Quarter: 2009Q1

REPORT INFORMATION
  Report Type: 
  Country: None (occurrence: None)
  Receive Date: 20090204
  Receipt Date: 20090202
  Transmission Date: 20090719
  Serious: No
  Sender: FDA-Public Use
  Company Number: US-B.I. PHARMACEUTICALS,INC./RIDGEFIELD-2008-BP-19202BP

PATIENT
  Age: 52 Year
  Sex: Female

DRUGS (1)
  1. COMBIVENT [Suspect]
     Dosage: 8PUF
     Route: 055
     Dates: start: 20080401

REACTIONS (1)
  - DRUG INEFFECTIVE [None]
